FAERS Safety Report 7703018-6 (Version None)
Quarter: 2011Q3

REPORT INFORMATION
  Report Type: 
  Country: None (occurrence: None)
  Receive Date: 20110823
  Receipt Date: 20110810
  Transmission Date: 20111222
  Serious: Yes (Other)
  Sender: FDA-Public Use
  Company Number: TW-RANBAXY-2011RR-45381

PATIENT
  Age: 42 Year
  Sex: Male

DRUGS (14)
  1. ARIPIPRAZOLE [Suspect]
     Dosage: 15 MG/DAY
     Route: 065
  2. ARIPIPRAZOLE [Suspect]
     Dosage: 20 MG/DAY
     Route: 065
  3. RISPERIDONE [Concomitant]
     Indication: OBSESSIVE-COMPULSIVE DISORDER
     Dosage: 4 MG, UNK
     Route: 065
  4. QUETIAPINE [Concomitant]
     Indication: OBSESSIVE-COMPULSIVE DISORDER
  5. ARIPIPRAZOLE [Suspect]
     Dosage: UNK
  6. ARIPIPRAZOLE [Suspect]
     Indication: OBSESSIVE-COMPULSIVE DISORDER
     Dosage: 10 MG/DAY
  7. ARIPIPRAZOLE [Suspect]
     Indication: HALLUCINATION
  8. FLUOXETINE [Suspect]
     Indication: OBSESSIVE-COMPULSIVE DISORDER
     Dosage: 60-80 MG/DAY
     Route: 065
  9. FLUOXETINE [Suspect]
     Dosage: 80 MG, UNK
     Route: 065
  10. ARIPIPRAZOLE [Suspect]
  11. ARIPIPRAZOLE [Suspect]
     Dosage: 10 MG/DAY
     Route: 065
  12. FLUOXETINE [Suspect]
     Dosage: 80 MG/DAY
     Route: 065
  13. QUETIAPINE [Concomitant]
     Indication: PSYCHOTIC DISORDER
     Dosage: 600-800 MG/DAY
     Route: 065
  14. RISPERIDONE [Concomitant]
     Indication: PSYCHOTIC DISORDER
     Dosage: 2-4 MG/DAY
     Route: 065

REACTIONS (2)
  - LEUKOPENIA [None]
  - DRUG INTERACTION [None]
